FAERS Safety Report 9017037 (Version 1)
Quarter: 2013Q1

REPORT INFORMATION
  Report Type: Spontaneous
  Country: MX (occurrence: MX)
  Receive Date: 20130117
  Receipt Date: 20130117
  Transmission Date: 20140127
  Serious: Yes (Other)
  Sender: FDA-Public Use
  Company Number: PHHY2013MX003740

PATIENT
  Age: 18 Year
  Sex: Male

DRUGS (2)
  1. TEGRETOL [Suspect]
     Indication: CONVULSION
     Dosage: 6 DF, DAILY
     Route: 048
  2. TEGRETOL [Suspect]
     Dosage: 3 DF, DAILY
     Route: 048

REACTIONS (6)
  - Brain neoplasm [Recovered/Resolved]
  - Respiratory disorder [Unknown]
  - Feeling abnormal [Not Recovered/Not Resolved]
  - Lung disorder [Unknown]
  - Convulsion [Not Recovered/Not Resolved]
  - Dyspnoea [Unknown]
